FAERS Safety Report 4443277-9 (Version None)
Quarter: 2004Q3

REPORT INFORMATION
  Report Type: 
  Country: None (occurrence: None)
  Receive Date: 20040907
  Receipt Date: 20040907
  Transmission Date: 20050211
  Serious: Yes (Life-Threatening, Hospitalization, Other)
  Sender: FDA-Public Use
  Company Number: None

PATIENT
  Age: 47 Year
  Sex: Female
  Weight: 49.8957 kg

DRUGS (3)
  1. BIAXIN [Suspect]
     Indication: EYE INFECTION
     Dosage: 1 TABLET   2 X DAY   ORAL
     Route: 048
     Dates: start: 20010318, end: 20010320
  2. PROGRAF [Concomitant]
  3. CELLCEPT [Concomitant]

REACTIONS (2)
  - DRUG LEVEL ABOVE THERAPEUTIC [None]
  - RENAL FAILURE [None]
